FAERS Safety Report 21492614 (Version 3)
Quarter: 2024Q4

REPORT INFORMATION
  Report Type: Spontaneous
  Country: US (occurrence: US)
  Receive Date: 20221021
  Receipt Date: 20241223
  Transmission Date: 20250115
  Serious: Yes (Other)
  Sender: PFIZER
  Company Number: US-PFIZER INC-PV202200085457

PATIENT
  Age: 90 Year
  Sex: Male

DRUGS (3)
  1. VYNDAMAX [Suspect]
     Active Substance: TAFAMIDIS
     Dosage: TAKE 1 CAPSULE (61 MG TOTAL) BY MOUTH DAILY
     Route: 048
  2. ELIQUIS [Concomitant]
     Active Substance: APIXABAN
     Indication: Thrombosis prophylaxis
     Dosage: 5 MG, 2X/DAY
     Route: 048
  3. NITROSTAT [Concomitant]
     Active Substance: NITROGLYCERIN
     Indication: Chest pain
     Dosage: PLACE 1 TABLET (0.4 MG TOTAL) UNDER THE TONGUE EVERY 5 (FIVE) MINUTES
     Route: 060

REACTIONS (1)
  - Altered state of consciousness [Unknown]
